FAERS Safety Report 8580163 (Version 5)
Quarter: 2016Q4

REPORT INFORMATION
  Report Type: Spontaneous
  Country: US (occurrence: US)
  Receive Date: 20120525
  Receipt Date: 20161117
  Transmission Date: 20170207
  Serious: Yes (Hospitalization, Other)
  Sender: FDA-Public Use
  Company Number: US-JNJFOC-20110802479

PATIENT
  Age: 58 Year
  Sex: Male

DRUGS (12)
  1. LEVAQUIN [Suspect]
     Active Substance: LEVOFLOXACIN
     Indication: PNEUMONIA BACTERIAL
     Route: 048
     Dates: start: 20090224, end: 20090301
  2. PREDNISONE. [Suspect]
     Active Substance: PREDNISONE
     Indication: DERMATITIS
     Route: 048
     Dates: start: 2002
  3. LEVAQUIN [Suspect]
     Active Substance: LEVOFLOXACIN
     Indication: BRONCHITIS
     Route: 048
  4. LEVAQUIN [Suspect]
     Active Substance: LEVOFLOXACIN
     Indication: PRODUCTIVE COUGH
     Route: 048
     Dates: start: 20090224, end: 20090301
  5. PREDNISONE. [Suspect]
     Active Substance: PREDNISONE
     Indication: SKIN DISORDER
     Route: 048
     Dates: start: 2002
  6. LEVAQUIN [Suspect]
     Active Substance: LEVOFLOXACIN
     Indication: PRODUCTIVE COUGH
     Route: 048
  7. ZITROMAX [Concomitant]
     Active Substance: AZITHROMYCIN
     Indication: BRONCHITIS
     Dates: start: 20090217, end: 20090321
  8. PREDNISONE. [Suspect]
     Active Substance: PREDNISONE
     Indication: PAIN
     Route: 048
     Dates: start: 2002
  9. LEVAQUIN [Suspect]
     Active Substance: LEVOFLOXACIN
     Indication: SINUS CONGESTION
     Route: 048
     Dates: start: 20090224, end: 20090301
  10. LEVAQUIN [Suspect]
     Active Substance: LEVOFLOXACIN
     Indication: SINUS CONGESTION
     Route: 048
  11. LEVAQUIN [Suspect]
     Active Substance: LEVOFLOXACIN
     Indication: BRONCHITIS
     Route: 048
     Dates: start: 20090224, end: 20090301
  12. LEVAQUIN [Suspect]
     Active Substance: LEVOFLOXACIN
     Indication: PNEUMONIA BACTERIAL
     Route: 048

REACTIONS (9)
  - Tendonitis [Recovering/Resolving]
  - Neuropathy peripheral [Not Recovered/Not Resolved]
  - Tendon injury [Unknown]
  - Peripheral swelling [Unknown]
  - Nerve injury [Unknown]
  - Carpal tunnel syndrome [Unknown]
  - Mononeuropathy [Unknown]
  - Limb injury [Unknown]
  - Tendon rupture [Recovering/Resolving]

NARRATIVE: CASE EVENT DATE: 200903
